FAERS Safety Report 25141310 (Version 1)
Quarter: 2025Q1

REPORT INFORMATION
  Report Type: Spontaneous
  Country: CA (occurrence: None)
  Receive Date: 20250331
  Receipt Date: 20250331
  Transmission Date: 20250409
  Serious: Yes (Other)
  Sender: ORION
  Company Number: CA-PFIZER INC-202500062822

PATIENT
  Age: 63 Year
  Sex: Male

DRUGS (2)
  1. METHOTREXATE [Suspect]
     Active Substance: METHOTREXATE
     Indication: Rheumatoid arthritis
     Dates: start: 20240417
  2. SULFASALAZINE [Concomitant]
     Active Substance: SULFASALAZINE
     Dates: start: 20240215, end: 20241112

REACTIONS (6)
  - Leukopenia [Unknown]
  - Haematochezia [Unknown]
  - Rheumatoid arthritis [Unknown]
  - Neutropenia [Unknown]
  - Spinal osteoarthritis [Unknown]
  - Night sweats [Unknown]
